FAERS Safety Report 25382983 (Version 1)
Quarter: 2025Q2

REPORT INFORMATION
  Report Type: Spontaneous
  Country: JP (occurrence: JP)
  Receive Date: 20250602
  Receipt Date: 20250602
  Transmission Date: 20250717
  Serious: Yes (Other)
  Sender: ROCHE
  Company Number: JP-CHUGAI-2025017343

PATIENT
  Age: 7 Decade
  Sex: Female

DRUGS (5)
  1. GAZYVA [Suspect]
     Active Substance: OBINUTUZUMAB
     Indication: Follicular lymphoma
     Route: 042
     Dates: start: 20240925
  2. CYCLOPHOSPHAMIDE [Concomitant]
     Active Substance: CYCLOPHOSPHAMIDE
     Indication: Follicular lymphoma
     Route: 042
  3. DOXORUBICIN HYDROCHLORIDE [Concomitant]
     Active Substance: DOXORUBICIN HYDROCHLORIDE
     Indication: Follicular lymphoma
     Route: 042
  4. VINCRISTINE SULFATE [Concomitant]
     Active Substance: VINCRISTINE SULFATE
     Indication: Follicular lymphoma
     Route: 042
  5. PREDNISOLONE [Concomitant]
     Active Substance: PREDNISOLONE
     Indication: Follicular lymphoma
     Route: 050

REACTIONS (1)
  - Follicular lymphoma recurrent [Unknown]
